FAERS Safety Report 13432729 (Version 1)
Quarter: 2017Q2

REPORT INFORMATION
  Report Type: Spontaneous
  Country: GB (occurrence: GB)
  Receive Date: 20170412
  Receipt Date: 20170412
  Transmission Date: 20170830
  Serious: Yes (Other)
  Sender: FDA-Public Use
  Company Number: GB-GLAXOSMITHKLINE-GB2017052309

PATIENT
  Age: 34 Year
  Sex: Female
  Weight: 69.85 kg

DRUGS (2)
  1. SERETIDE [Suspect]
     Active Substance: FLUTICASONE PROPIONATE\SALMETEROL XINAFOATE
     Indication: ASTHMA
     Dosage: 250
     Route: 055
     Dates: start: 20160514, end: 20170216
  2. FOSTAIR [Suspect]
     Active Substance: BECLOMETHASONE\FORMOTEROL
     Indication: ASTHMA
     Dosage: 100/6
     Route: 055
     Dates: start: 20170203, end: 20170304

REACTIONS (2)
  - Dysphonia [Recovered/Resolved]
  - Vocal cord thickening [Recovered/Resolved]
